FAERS Safety Report 5078296-5 (Version None)
Quarter: 2006Q3

REPORT INFORMATION
  Report Type: 
  Country: None (occurrence: None)
  Receive Date: 20060811
  Receipt Date: 20060712
  Transmission Date: 20061208
  Serious: Yes (Hospitalization)
  Sender: FDA-Public Use
  Company Number: US-NOVOPROD-254935

PATIENT
  Age: 64 Year
  Sex: Female
  Weight: 99 kg

DRUGS (17)
  1. INSULIN DETEMIR FLEXPEN [Suspect]
     Indication: INSULIN-REQUIRING TYPE II DIABETES MELLITUS
     Dosage: 34 U, QD
     Route: 058
     Dates: start: 20060418
  2. ZOCOR [Concomitant]
     Dosage: 20 MG, QD
     Route: 048
     Dates: start: 20000922
  3. ALLEGRA                            /01314201/ [Concomitant]
     Dosage: 60 MG, QD
     Route: 048
     Dates: start: 20000604
  4. AMARYL [Concomitant]
     Dosage: 4 MG, QD
     Route: 048
     Dates: start: 20030128
  5. ACTOS                              /01460201/ [Concomitant]
     Dosage: 30 MG, QD
     Route: 048
     Dates: start: 20000406
  6. GLUCOPHAGE                         /00082701/ [Concomitant]
     Dosage: 2000 MG, QD
     Route: 048
     Dates: start: 19960419
  7. ZIAC                               /01166101/ [Concomitant]
     Dosage: 1 TAB, QD
     Route: 048
     Dates: start: 19960101
  8. MONOPRIL [Concomitant]
     Dosage: 10 MG, QD
     Route: 048
     Dates: start: 19971125
  9. PREMPRO [Concomitant]
     Dosage: 1 TAB, QD
     Route: 048
     Dates: start: 19970703
  10. ELAVIL                             /00002202/ [Concomitant]
     Dosage: 150 MG, QD
     Route: 048
  11. VICODIN [Concomitant]
     Indication: PAIN
     Dosage: UNK, PRN
     Route: 048
  12. CALCIUM GLUCONATE [Concomitant]
     Route: 048
  13. BUMETANIDE [Concomitant]
     Dosage: 2 MG, QD
     Route: 048
  14. RELAFEN [Concomitant]
     Dosage: 10 MG, PRN
     Route: 048
  15. FIBERCON [Concomitant]
     Route: 048
  16. REQUIP [Concomitant]
     Indication: RESTLESS LEGS SYNDROME
  17. ESZOPICLONE [Concomitant]
     Dosage: UNK, PRN

REACTIONS (3)
  - CAROTID ARTERY STENOSIS [None]
  - CEREBRAL INFARCTION [None]
  - DELIRIUM [None]
